FAERS Safety Report 9865654 (Version 2)
Quarter: 2014Q1

REPORT INFORMATION
  Report Type: Spontaneous
  Country: US (occurrence: US)
  Receive Date: 20140203
  Receipt Date: 20140203
  Transmission Date: 20141002
  Serious: No
  Sender: FDA-Public Use
  Company Number: US-ALLERGAN-1305894US

PATIENT
  Age: 3 Decade
  Sex: Male

DRUGS (4)
  1. RESTASIS [Suspect]
     Indication: DRY EYE
     Dosage: UNK
     Dates: start: 201302
  2. RESTASIS [Suspect]
     Dosage: 2 GTT, BID
     Route: 047
     Dates: start: 201206, end: 201301
  3. PAXIL [Concomitant]
     Indication: PRODUCT USED FOR UNKNOWN INDICATION
  4. CLONIDINE [Concomitant]
     Indication: DEPRESSION

REACTIONS (5)
  - Corneal infiltrates [Recovering/Resolving]
  - Conjunctivitis viral [Recovering/Resolving]
  - Contact lens intolerance [Unknown]
  - Eye irritation [Recovering/Resolving]
  - Eye irritation [Recovering/Resolving]
